FAERS Safety Report 4586413-6 (Version None)
Quarter: 2005Q1

REPORT INFORMATION
  Report Type: 
  Country: None (occurrence: None)
  Receive Date: 20050125
  Receipt Date: 20040907
  Transmission Date: 20050727
  Serious: No
  Sender: FDA-Public Use
  Company Number: USA040977590

PATIENT
  Age: 77 Year
  Sex: Female

DRUGS (1)
  1. FORTEO [Suspect]
     Indication: BONE DISORDER
     Dates: start: 20040826

REACTIONS (5)
  - ASTHENIA [None]
  - BACK PAIN [None]
  - DIFFICULTY IN WALKING [None]
  - FEELING ABNORMAL [None]
  - PAIN IN EXTREMITY [None]
